FAERS Safety Report 12340996 (Version 1)
Quarter: 2016Q2

REPORT INFORMATION
  Report Type: Spontaneous
  Country: US (occurrence: US)
  Receive Date: 20160506
  Receipt Date: 20160506
  Transmission Date: 20160815
  Serious: No
  Sender: FDA-Public Use
  Company Number: US-ASTRAZENECA-2016SE38659

PATIENT
  Sex: Female
  Weight: 94.3 kg

DRUGS (1)
  1. SYMBICORT [Suspect]
     Active Substance: BUDESONIDE\FORMOTEROL FUMARATE DIHYDRATE
     Indication: ASTHMA
     Dosage: 160/4.5 ???G 2 PUFFS, TWO TIMES A DAY
     Route: 055

REACTIONS (5)
  - Ear infection [Unknown]
  - Product taste abnormal [Unknown]
  - Lung disorder [Unknown]
  - Device malfunction [Unknown]
  - Malaise [Unknown]
